FAERS Safety Report 11194967 (Version 1)
Quarter: 2015Q2

REPORT INFORMATION
  Report Type: Spontaneous
  Country: GR (occurrence: GR)
  Receive Date: 20150617
  Receipt Date: 20150617
  Transmission Date: 20150821
  Serious: Yes (Hospitalization, Other)
  Sender: FDA-Public Use
  Company Number: GR-PFIZER INC-2014267413

PATIENT
  Age: 53 Year
  Sex: Male

DRUGS (1)
  1. SUTENT [Suspect]
     Active Substance: SUNITINIB MALATE
     Indication: NEOPLASM MALIGNANT
     Dosage: 50 MG, UNK

REACTIONS (10)
  - Disease progression [Unknown]
  - Epilepsy [Unknown]
  - Tooth disorder [Unknown]
  - Neoplasm malignant [Unknown]
  - Gingival pain [Not Recovered/Not Resolved]
  - Diarrhoea [Unknown]
  - Blood disorder [Unknown]
  - Cerebrovascular accident [Unknown]
  - Thyroid disorder [Unknown]
  - Metabolic acidosis [Unknown]
